FAERS Safety Report 8699770 (Version 2)
Quarter: 2013Q4

REPORT INFORMATION
  Report Type: Spontaneous
  Country: US (occurrence: US)
  Receive Date: 20120802
  Receipt Date: 20131101
  Transmission Date: 20140711
  Serious: No
  Sender: FDA-Public Use
  Company Number: US-009507513-96081289

PATIENT
  Age: 77 Year
  Sex: Female
  Weight: 63.49 kg

DRUGS (4)
  1. FOSAMAX [Suspect]
     Indication: OSTEOPOROSIS
     Dosage: 10 MG, QD
     Route: 048
     Dates: start: 199602, end: 199702
  2. TYLENOL [Concomitant]
  3. PAXIL [Concomitant]
     Dosage: 20 MG, UNK
     Dates: start: 1995
  4. LASIX (FUROSEMIDE SODIUM) [Concomitant]
     Dosage: 20 MG, UNK
     Dates: start: 19960523

REACTIONS (4)
  - Hot flush [Recovered/Resolved]
  - Myalgia [Recovered/Resolved]
  - Chest pain [Unknown]
  - Dysgeusia [Unknown]
